FAERS Safety Report 8387449-X (Version None)
Quarter: 2012Q2

REPORT INFORMATION
  Report Type: 
  Country: None (occurrence: None)
  Receive Date: 20120525
  Receipt Date: 20120518
  Transmission Date: 20120825
  Serious: Yes (Other)
  Sender: FDA-Public Use
  Company Number: PHHY2011JP76545

PATIENT
  Sex: Female

DRUGS (21)
  1. LANSOPRAZOLE [Concomitant]
     Dosage: 30 MG
     Dates: start: 20100921
  2. FAROM [Concomitant]
     Indication: CYSTITIS
     Dosage: 600 MG
     Route: 048
     Dates: start: 20101005, end: 20101022
  3. BROTIZOLAM [Concomitant]
     Indication: INSOMNIA
     Dosage: 0.25 MG
     Route: 048
     Dates: start: 20101015, end: 20101028
  4. PROCHLORPERAZINE [Concomitant]
     Indication: PROPHYLAXIS
     Dosage: 35 MG
     Route: 048
     Dates: start: 20100813, end: 20100820
  5. ACETAMINOPHEN [Concomitant]
     Indication: METASTATIC RENAL CELL CARCINOMA
     Dosage: 800 MG
     Route: 048
     Dates: start: 20100813, end: 20100826
  6. LOXONIN [Concomitant]
     Indication: CYSTITIS
     Dosage: 60 MG
     Route: 048
     Dates: start: 20101029, end: 20101029
  7. ABILIT [Concomitant]
     Dosage: 1.5 MG
     Route: 048
     Dates: start: 20101209
  8. MAGNESIUM SULFATE [Concomitant]
     Indication: PROPHYLAXIS
     Dosage: 750 MG
     Route: 048
     Dates: start: 20100813
  9. LEVOTHYROXINE SODIUM [Concomitant]
     Dosage: 50 MG
     Route: 048
     Dates: start: 20100812
  10. ZOLPIDEM [Concomitant]
     Indication: INSOMNIA
     Dosage: 10 MG
     Route: 048
     Dates: start: 20101101, end: 20101102
  11. PRIMPERAN TAB [Concomitant]
     Dosage: 15 MG, UNK
     Route: 048
     Dates: start: 20100807
  12. AFINITOR [Suspect]
     Indication: METASTATIC RENAL CELL CARCINOMA
     Dosage: 10 MG, DAILY
     Route: 048
     Dates: start: 20100812, end: 20100901
  13. OXYCONTIN [Suspect]
     Indication: METASTATIC RENAL CELL CARCINOMA
     Dosage: 20 MG, DAILY
     Route: 048
     Dates: start: 20100813
  14. LEVOFLOXACIN [Concomitant]
     Dosage: 500 MG
     Route: 048
     Dates: start: 20100127
  15. UBRETID [Concomitant]
     Indication: NEUROGENIC BLADDER
     Dosage: 5 MG
     Route: 048
     Dates: start: 20101105
  16. DEPAS [Concomitant]
     Indication: ANXIETY
     Dosage: 1.5 MG
     Route: 048
     Dates: start: 20101105
  17. LASIX [Concomitant]
     Dosage: 40 MG
     Route: 048
     Dates: start: 20101130
  18. EBRANTIL [Concomitant]
     Indication: NEUROGENIC BLADDER
     Dosage: 60 MG
     Route: 048
     Dates: start: 20101105
  19. AFINITOR [Suspect]
     Dosage: 5 MG, DAILY
     Route: 048
     Dates: start: 20100908
  20. LEVOFLOXACIN [Concomitant]
     Indication: CYSTITIS
     Dosage: 500 MG
     Route: 048
     Dates: start: 20101029
  21. RELENZA [Concomitant]
     Indication: INFLUENZA
     Dosage: 1.5 MG
     Route: 048
     Dates: start: 20110125, end: 20110129

REACTIONS (5)
  - NAUSEA [None]
  - C-REACTIVE PROTEIN INCREASED [None]
  - VOMITING [None]
  - LYMPHOCYTE COUNT DECREASED [None]
  - THROMBOCYTOPENIA [None]
